FAERS Safety Report 10921215 (Version 1)
Quarter: 2015Q1

REPORT INFORMATION
  Report Type: Spontaneous
  Country: US (occurrence: None)
  Receive Date: 20150313
  Receipt Date: 20150313
  Transmission Date: 20150721
  Serious: Yes (Hospitalization)
  Sender: FDA-Public Use
  Company Number: None

PATIENT
  Age: 57 Year
  Sex: Male
  Weight: 122.9 kg

DRUGS (2)
  1. GEMCITABINE HYDROCHLORIDE. [Suspect]
     Active Substance: GEMCITABINE HYDROCHLORIDE
     Dates: start: 20141106
  2. XELODA [Suspect]
     Active Substance: CAPECITABINE
     Dates: start: 20141215

REACTIONS (3)
  - Blood pressure increased [None]
  - Glomerulonephritis [None]
  - Proteinuria [None]

NARRATIVE: CASE EVENT DATE: 20150102
